FAERS Safety Report 9510076 (Version 1)
Quarter: 2013Q3

REPORT INFORMATION
  Report Type: Spontaneous
  Country: US (occurrence: US)
  Receive Date: 20130909
  Receipt Date: 20130909
  Transmission Date: 20140515
  Serious: No
  Sender: FDA-Public Use
  Company Number: US-BRISTOL-MYERS SQUIBB COMPANY-17126434

PATIENT
  Age: 39 Year
  Sex: Female
  Weight: 113.38 kg

DRUGS (3)
  1. ABILIFY [Suspect]
     Indication: DEPRESSION
     Dosage: STARTED WITH 5MG
     Dates: start: 201106
  2. PRISTIQ [Concomitant]
  3. XANAX [Concomitant]
     Dosage: AT BED TIME

REACTIONS (1)
  - Tardive dyskinesia [Unknown]
